FAERS Safety Report 25794743 (Version 3)
Quarter: 2025Q4

REPORT INFORMATION
  Report Type: Report from Study
  Country: US (occurrence: US)
  Receive Date: 20250912
  Receipt Date: 20251223
  Transmission Date: 20260117
  Serious: Yes (Other)
  Sender: ABBVIE
  Company Number: US-ABBVIE-6271755

PATIENT
  Age: 77 Year
  Sex: Male

DRUGS (2)
  1. SKYRIZI [Suspect]
     Active Substance: RISANKIZUMAB-RZAA
     Indication: Crohn^s disease
     Dosage: DOSE FORM-SOLUTION FOR INJECTION IN PRE-FILLED INJECTOR
     Route: 058
  2. SKYRIZI [Suspect]
     Active Substance: RISANKIZUMAB-RZAA
     Indication: Crohn^s disease
     Dosage: DOSE FORM-SOLUTION FOR INFUSION
     Route: 042
     Dates: start: 20240605

REACTIONS (9)
  - Prostate cancer [Unknown]
  - Fall [Unknown]
  - Asthenia [Unknown]
  - Urine abnormality [Unknown]
  - Micturition urgency [Recovered/Resolved]
  - Dysuria [Not Recovered/Not Resolved]
  - Prostatic specific antigen increased [Unknown]
  - Pancreatic carcinoma [Unknown]
  - Incontinence [Unknown]

NARRATIVE: CASE EVENT DATE: 20240101
